FAERS Safety Report 7397316-6 (Version None)
Quarter: 2011Q2

REPORT INFORMATION
  Report Type: 
  Country: None (occurrence: None)
  Receive Date: 20110406
  Receipt Date: 20110325
  Transmission Date: 20111010
  Serious: Yes (Hospitalization)
  Sender: FDA-Public Use
  Company Number: AR-PFIZER INC-2011060011

PATIENT
  Age: 34 Year
  Sex: Female
  Weight: 48 kg

DRUGS (3)
  1. SUTENT [Suspect]
     Indication: ALVEOLAR SOFT PART SARCOMA METASTATIC
     Dosage: 50 MG, 1X/DAY
     Route: 048
     Dates: start: 20110224, end: 20110227
  2. T4 [Concomitant]
     Dosage: UNK
  3. IRON [Concomitant]
     Dosage: UNK

REACTIONS (8)
  - URINARY TRACT INFECTION [None]
  - ABDOMINAL DISTENSION [None]
  - HAEMOPTYSIS [None]
  - ABDOMINAL PAIN UPPER [None]
  - PYREXIA [None]
  - TONGUE DISORDER [None]
  - WHITE BLOOD CELL COUNT DECREASED [None]
  - COUGH [None]
